FAERS Safety Report 13905641 (Version 10)
Quarter: 2017Q4

REPORT INFORMATION
  Report Type: Spontaneous
  Country: JP (occurrence: JP)
  Receive Date: 20170825
  Receipt Date: 20171222
  Transmission Date: 20180320
  Serious: Yes (Death, Life-Threatening, Hospitalization, Other)
  Sender: FDA-Public Use
  Company Number: JP-ASTRAZENECA-2017SE86158

PATIENT
  Age: 27831 Day
  Sex: Female
  Weight: 41 kg

DRUGS (14)
  1. LYRICA [Concomitant]
     Active Substance: PREGABALIN
     Dates: start: 20170822
  2. TAGRISSO [Suspect]
     Active Substance: OSIMERTINIB
     Indication: NON-SMALL CELL LUNG CANCER
     Route: 048
     Dates: start: 20170705, end: 2017
  3. AMBROXOL HYDROCHLORIDE [Concomitant]
     Active Substance: AMBROXOL HYDROCHLORIDE
     Dates: start: 20160713, end: 20170822
  4. DENOTAS [Concomitant]
     Active Substance: CALCIUM CARBONATE\CHOLECALCIFEROL\MAGNESIUM CARBONATE
     Route: 048
     Dates: start: 20160730
  5. EFIENT [Suspect]
     Active Substance: PRASUGREL HYDROCHLORIDE
     Route: 048
     Dates: start: 20170206, end: 20170823
  6. RANMARK [Concomitant]
     Active Substance: DENOSUMAB
     Dates: start: 20160801, end: 20170925
  7. TAGRISSO [Suspect]
     Active Substance: OSIMERTINIB
     Indication: NON-SMALL CELL LUNG CANCER
     Route: 048
     Dates: start: 2017, end: 20170817
  8. ISOSORBIDE DINITRATE. [Concomitant]
     Active Substance: ISOSORBIDE DINITRATE
     Dates: start: 20170206
  9. LANSOPRAZOLE. [Concomitant]
     Active Substance: LANSOPRAZOLE
     Route: 048
     Dates: start: 20170708
  10. BENIDIPINE HYDROCHLORIDE [Concomitant]
     Active Substance: BENIDIPINE HYDROCHLORIDE
     Dates: start: 20170206, end: 20170822
  11. LIXIANA [Suspect]
     Active Substance: EDOXABAN TOSYLATE
     Indication: CARDIOVASCULAR DISORDER
     Route: 048
     Dates: start: 20170706, end: 20170818
  12. SYMBICORT TURBUHALER 30 DOSES [Concomitant]
  13. PITAVASTATIN CA [Concomitant]
     Active Substance: PITAVASTATIN CALCIUM
     Dates: start: 20170228, end: 20170822
  14. MONTELUKAST [Concomitant]
     Active Substance: MONTELUKAST SODIUM
     Route: 048
     Dates: start: 20170117, end: 20170822

REACTIONS (9)
  - Eosinophilic pneumonia [Recovered/Resolved]
  - Alveolar lung disease [Unknown]
  - Liver disorder [Unknown]
  - Pneumocystis jirovecii pneumonia [Unknown]
  - Stress cardiomyopathy [Recovered/Resolved]
  - Pulmonary fibrosis [Unknown]
  - Malignant neoplasm progression [Fatal]
  - Lymphadenopathy [Unknown]
  - Metastases to liver [Unknown]

NARRATIVE: CASE EVENT DATE: 20170813
